FAERS Safety Report 5786332-3 (Version None)
Quarter: 2008Q2

REPORT INFORMATION
  Report Type: 
  Country: None (occurrence: None)
  Receive Date: 20080624
  Receipt Date: 20080612
  Transmission Date: 20081010
  Serious: Yes (Congenital Anomaly, Other)
  Sender: FDA-Public Use
  Company Number: US-PFIZER INC-2007095357

PATIENT
  Sex: Male

DRUGS (1)
  1. ZOLOFT [Suspect]
     Indication: POSTPARTUM DEPRESSION

REACTIONS (20)
  - AORTIC VALVE STENOSIS [None]
  - ARTHRITIS [None]
  - BLOOD PRESSURE SYSTOLIC DECREASED [None]
  - BONE DISORDER [None]
  - CARDIAC SEPTAL DEFECT [None]
  - COLLAPSE OF LUNG [None]
  - CONGENITAL HEART VALVE DISORDER [None]
  - DEVELOPMENTAL DELAY [None]
  - DRUG EXPOSURE DURING PREGNANCY [None]
  - DYSPHAGIA [None]
  - EAR INFECTION [None]
  - ECZEMA [None]
  - FEEDING DISORDER OF INFANCY OR EARLY CHILDHOOD [None]
  - HYPOTHALAMO-PITUITARY DISORDER [None]
  - LETHARGY [None]
  - PATENT DUCTUS ARTERIOSUS [None]
  - PERSISTENT FOETAL CIRCULATION [None]
  - PNEUMONIA [None]
  - RESPIRATORY DISTRESS [None]
  - WALKING DISABILITY [None]
